FAERS Safety Report 21552867 (Version 1)
Quarter: 2022Q4

REPORT INFORMATION
  Report Type: Spontaneous
  Country: UZ (occurrence: UZ)
  Receive Date: 20221104
  Receipt Date: 20221104
  Transmission Date: 20230113
  Serious: Yes (Hospitalization)
  Sender: FDA-Public Use
  Company Number: UZ-JNJFOC-20221052884

PATIENT
  Age: 72 Year
  Sex: Male
  Weight: 80 kg

DRUGS (8)
  1. SIRTURO [Suspect]
     Active Substance: BEDAQUILINE FUMARATE
     Indication: Tuberculosis
     Dosage: DOSE: 400
     Route: 048
     Dates: start: 20211027, end: 20211110
  2. SIRTURO [Suspect]
     Active Substance: BEDAQUILINE FUMARATE
     Dosage: DOSE: 200
     Route: 048
     Dates: start: 20211111
  3. MOXIFLOXACIN [Suspect]
     Active Substance: MOXIFLOXACIN
     Indication: Tuberculosis
     Dosage: DOSE: 400
     Route: 048
     Dates: start: 20211027, end: 20211230
  4. CLOFAZIMINE [Suspect]
     Active Substance: CLOFAZIMINE
     Indication: Tuberculosis
     Dosage: DOSE: 100
     Route: 048
     Dates: start: 20211027
  5. CYCLOSERINE [Suspect]
     Active Substance: CYCLOSERINE
     Indication: Tuberculosis
     Dosage: DOSE: 750
     Route: 048
     Dates: start: 20211027, end: 20220922
  6. CYCLOSERINE [Suspect]
     Active Substance: CYCLOSERINE
     Dosage: DOSE: 500
     Route: 048
     Dates: start: 20210923
  7. LINEZOLID [Suspect]
     Active Substance: LINEZOLID
     Indication: Tuberculosis
     Dosage: DOSE: 300
     Route: 048
     Dates: start: 20211027, end: 20220920
  8. DELAMANID [Suspect]
     Active Substance: DELAMANID
     Indication: Tuberculosis
     Dosage: DOSE: 200
     Route: 048
     Dates: start: 20211230

REACTIONS (1)
  - Polyneuropathy [Not Recovered/Not Resolved]

NARRATIVE: CASE EVENT DATE: 20220715
